FAERS Safety Report 24173401 (Version 1)
Quarter: 2024Q3

REPORT INFORMATION
  Report Type: Spontaneous
  Country: FR (occurrence: FR)
  Receive Date: 20240805
  Receipt Date: 20240805
  Transmission Date: 20241016
  Serious: Yes (Life-Threatening)
  Sender: CSL BEHRING
  Company Number: None

PATIENT
  Age: 79 Year
  Sex: Male

DRUGS (3)
  1. RHOPHYLAC [Suspect]
     Active Substance: HUMAN RHO(D) IMMUNE GLOBULIN
     Indication: Rhesus incompatibility
     Dosage: 200 ?G
     Route: 030
     Dates: start: 20240705, end: 20240705
  2. RHOPHYLAC [Suspect]
     Active Substance: HUMAN RHO(D) IMMUNE GLOBULIN
     Indication: Rhesus incompatibility
     Dosage: 200 ?G
     Route: 030
     Dates: start: 20240705, end: 20240705
  3. PROGRAF [Suspect]
     Active Substance: TACROLIMUS
     Indication: Prophylaxis against transplant rejection
     Dosage: 1 MG
     Route: 042
     Dates: start: 20240705, end: 20240705

REACTIONS (1)
  - Anaphylactic shock [Recovered/Resolved]

NARRATIVE: CASE EVENT DATE: 20240705
